FAERS Safety Report 8025274-X (Version None)
Quarter: 2012Q1

REPORT INFORMATION
  Report Type: 
  Country: None (occurrence: None)
  Receive Date: 20120105
  Receipt Date: 20111227
  Transmission Date: 20120608
  Serious: Yes (Other)
  Sender: FDA-Public Use
  Company Number: US-AMGEN-USASP2011068948

PATIENT
  Age: 77 Year
  Sex: Female

DRUGS (3)
  1. EVISTA [Concomitant]
  2. SENSIPAR [Suspect]
     Indication: HYPERPARATHYROIDISM PRIMARY
     Dates: start: 20111222, end: 20111224
  3. VITAMIN D [Concomitant]

REACTIONS (4)
  - APPARENT DEATH [None]
  - BONE PAIN [None]
  - ARTHRALGIA [None]
  - TREMOR [None]
